FAERS Safety Report 7877744-2 (Version None)
Quarter: 2011Q4

REPORT INFORMATION
  Report Type: 
  Country: None (occurrence: None)
  Receive Date: 20111031
  Receipt Date: 20111031
  Transmission Date: 20120403
  Serious: No
  Sender: FDA-Public Use
  Company Number: None

PATIENT
  Age: 6 Year
  Sex: Male

DRUGS (1)
  1. ADDERALL 5 [Suspect]
     Dosage: 10MG-1 TABLET
     Route: 048
     Dates: start: 20110928, end: 20110928

REACTIONS (4)
  - TACHYCARDIA [None]
  - AGITATION [None]
  - RESTLESSNESS [None]
  - PRURITUS [None]
